FAERS Safety Report 6761460-4 (Version None)
Quarter: 2010Q2

REPORT INFORMATION
  Report Type: 
  Country: None (occurrence: None)
  Receive Date: 20100608
  Receipt Date: 20100528
  Transmission Date: 20101027
  Serious: Yes (Hospitalization)
  Sender: FDA-Public Use
  Company Number: US-ROCHE-707643

PATIENT
  Sex: Female
  Weight: 102.9 kg

DRUGS (11)
  1. BEVACIZUMAB [Suspect]
     Indication: GLIOBLASTOMA MULTIFORME
     Route: 042
     Dates: start: 20100514
  2. TEMOZOLOMIDE [Suspect]
     Indication: GLIOBLASTOMA MULTIFORME
     Dosage: DAYS 1-5
     Route: 048
     Dates: start: 20100514, end: 20100518
  3. TOPOTECAN [Suspect]
     Indication: GLIOBLASTOMA MULTIFORME
     Dosage: DAYS: 2-6
     Route: 048
     Dates: start: 20100515, end: 20100519
  4. ALLEGRA [Concomitant]
  5. PRILOSEC [Concomitant]
  6. DILANTIN [Concomitant]
     Dosage: DOSE: 300 MG (AM) AND 200 MG (PM).
  7. DETROL LA [Concomitant]
  8. TYLENOL [Concomitant]
     Dosage: AS NECESSARY
     Route: 048
  9. ZOMIG [Concomitant]
     Route: 048
  10. AMBIEN [Concomitant]
     Dosage: AT BEDTIME
     Route: 048
  11. POTASSIUM [Concomitant]
     Route: 048

REACTIONS (4)
  - CONFUSIONAL STATE [None]
  - HYPOKALAEMIA [None]
  - LEUKOPENIA [None]
  - MENTAL IMPAIRMENT [None]
